FAERS Safety Report 4683150-4 (Version None)
Quarter: 2005Q2

REPORT INFORMATION
  Report Type: 
  Country: None (occurrence: None)
  Receive Date: 20050602
  Receipt Date: 20050406
  Transmission Date: 20051028
  Serious: No
  Sender: FDA-Public Use
  Company Number: USA050494680

PATIENT
  Age: 81 Year
  Sex: Male

DRUGS (4)
  1. CYMBALTA [Suspect]
     Indication: ANXIETY
     Dosage: 30 MG IN THE EVENING
     Dates: start: 20050322
  2. LORAZEPAM [Concomitant]
  3. NEURONTIN [Concomitant]
  4. NEXIUM [Concomitant]

REACTIONS (5)
  - BALANCE DISORDER [None]
  - DIZZINESS [None]
  - DIZZINESS POSTURAL [None]
  - DRUG INEFFECTIVE [None]
  - GAIT DISTURBANCE [None]
